FAERS Safety Report 4779730-8 (Version None)
Quarter: 2005Q3

REPORT INFORMATION
  Report Type: 
  Country: None (occurrence: None)
  Receive Date: 20050914
  Receipt Date: 20050509
  Transmission Date: 20060218
  Serious: Yes (Hospitalization)
  Sender: FDA-Public Use
  Company Number: 163-20785-04100371

PATIENT
  Age: 57 Year
  Sex: Female
  Weight: 64.5 kg

DRUGS (13)
  1. THALOMID [Suspect]
     Indication: MULTIPLE MYELOMA
     Dosage: ORAL
     Route: 048
     Dates: start: 20040410
  2. BORTEZOMIB (BORTEZOMIB) [Suspect]
     Indication: MULTIPLE MYELOMA
     Dates: start: 20040410
  3. DEXAMETHASONE [Suspect]
     Indication: MULTIPLE MYELOMA
     Dates: start: 20040410
  4. CISPLATIN [Suspect]
     Indication: MULTIPLE MYELOMA
     Dates: start: 20040410
  5. ADRIAMYCIN PFS [Suspect]
     Indication: MULTIPLE MYELOMA
     Dates: start: 20040410
  6. CYCLOPHOSPHAMIDE [Suspect]
     Indication: MULTIPLE MYELOMA
     Dates: start: 20040410
  7. ETOPOSIDE [Suspect]
     Indication: MULTIPLE MYELOMA
     Dates: start: 20040410
  8. MELPHALAN (MELPHALAN) [Suspect]
     Indication: MULTIPLE MYELOMA
     Dosage: 100 MG/M2, DAILY, INTRAVENOUS
     Route: 042
     Dates: start: 20040713, end: 20040714
  9. PENICILLIN [Suspect]
     Indication: INFECTION PROPHYLAXIS
     Dates: start: 20040713
  10. DOXYCYCLINE [Suspect]
     Indication: INFECTION PROPHYLAXIS
     Dates: start: 20040807
  11. ACYCLOVIR [Concomitant]
  12. COMPAZINE [Concomitant]
  13. ATIVAN [Concomitant]

REACTIONS (14)
  - ANAPHYLACTIC REACTION [None]
  - CENTRAL LINE INFECTION [None]
  - CHILLS [None]
  - CYTOMEGALOVIRUS ANTIGEN POSITIVE [None]
  - CYTOMEGALOVIRUS INFECTION [None]
  - FEBRILE NEUTROPENIA [None]
  - HYPOTENSION [None]
  - INFECTION [None]
  - PYREXIA [None]
  - RASH [None]
  - SINUSITIS [None]
  - STAPHYLOCOCCAL INFECTION [None]
  - SUPRAVENTRICULAR TACHYCARDIA [None]
  - TACHYCARDIA [None]
